FAERS Safety Report 14284079 (Version 1)
Quarter: 2017Q4

REPORT INFORMATION
  Report Type: Spontaneous
  Country: US (occurrence: US)
  Receive Date: 20171214
  Receipt Date: 20171214
  Transmission Date: 20180321
  Serious: Yes (Other)
  Sender: FDA-Public Use
  Company Number: US-ASTRAZENECA-2017SF26452

PATIENT
  Age: 66 Year
  Sex: Female
  Weight: 45.4 kg

DRUGS (7)
  1. LYNPARZA [Suspect]
     Active Substance: OLAPARIB
     Indication: FALLOPIAN TUBE CANCER STAGE III
     Route: 048
     Dates: start: 20171022
  2. LYNPARZA [Suspect]
     Active Substance: OLAPARIB
     Indication: FALLOPIAN TUBE CANCER STAGE III
     Route: 048
  3. TAXOL [Concomitant]
     Active Substance: PACLITAXEL
     Dates: start: 201605
  4. DOXIL [Concomitant]
     Active Substance: DOXORUBICIN HYDROCHLORIDE
     Dates: start: 201705
  5. LISINOPRIL. [Suspect]
     Active Substance: LISINOPRIL
     Indication: BLOOD PRESSURE ABNORMAL
     Route: 048
     Dates: start: 2007
  6. TAXOL [Concomitant]
     Active Substance: PACLITAXEL
     Dates: start: 201705
  7. LYNPARZA [Suspect]
     Active Substance: OLAPARIB
     Indication: FALLOPIAN TUBE CANCER STAGE III
     Route: 048

REACTIONS (8)
  - Abdominal adhesions [Unknown]
  - Diarrhoea [Unknown]
  - Fallopian tube cancer [Unknown]
  - Carbohydrate antigen 125 increased [Unknown]
  - Constipation [Unknown]
  - Weight gain poor [Unknown]
  - Diverticulitis [Not Recovered/Not Resolved]
  - Cholelithiasis [Unknown]

NARRATIVE: CASE EVENT DATE: 2016
